FAERS Safety Report 9366679 (Version 1)
Quarter: 2013Q2

REPORT INFORMATION
  Report Type: Report from Study
  Country: GB (occurrence: GB)
  Receive Date: 20130625
  Receipt Date: 20130625
  Transmission Date: 20140414
  Serious: Yes (Hospitalization)
  Sender: FDA-Public Use
  Company Number: GB-ABBOTT-13P-167-1110072-00

PATIENT
  Age: 62 Year
  Sex: Male
  Weight: 94.6 kg

DRUGS (4)
  1. HUMIRA [Suspect]
     Indication: PSORIASIS
     Route: 058
     Dates: start: 20120226, end: 20121122
  2. HUMIRA [Suspect]
     Dates: start: 20130417
  3. AMLODIPINE [Concomitant]
     Indication: PRODUCT USED FOR UNKNOWN INDICATION
     Dates: start: 20101222
  4. EZETIMIBE [Concomitant]
     Indication: PRODUCT USED FOR UNKNOWN INDICATION
     Dates: start: 20120515

REACTIONS (2)
  - Peripheral artery aneurysm [Recovered/Resolved]
  - Postoperative wound infection [Recovered/Resolved]
